FAERS Safety Report 8405076-2 (Version None)
Quarter: 2012Q2

REPORT INFORMATION
  Report Type: 
  Country: None (occurrence: None)
  Receive Date: 20120601
  Receipt Date: 20120518
  Transmission Date: 20120825
  Serious: Yes (Other)
  Sender: FDA-Public Use
  Company Number: CHPA2012US011328

PATIENT
  Sex: Male

DRUGS (2)
  1. EXCEDRIN EXTRA STRENGTH TABLETS [Suspect]
     Indication: MIGRAINE
     Dosage: 2 TO 4 DF, PRN
     Route: 048
     Dates: start: 20060101, end: 20120401
  2. LORTAB [Concomitant]
     Dosage: UNK, UNK

REACTIONS (4)
  - HOT FLUSH [None]
  - HEADACHE [None]
  - HEART RATE INCREASED [None]
  - CHEST PAIN [None]
